FAERS Safety Report 8168702-1 (Version None)
Quarter: 2012Q1

REPORT INFORMATION
  Report Type: 
  Country: None (occurrence: None)
  Receive Date: 20120103
  Receipt Date: 20111116
  Transmission Date: 20120608
  Serious: No
  Sender: FDA-Public Use
  Company Number: AE-2011-003599

PATIENT
  Age: 59 Year
  Sex: Female
  Weight: 63.5036 kg

DRUGS (5)
  1. PEGASYS [Concomitant]
  2. RIBAVIRIN [Concomitant]
  3. IBUPROFEN (ADVIL) [Concomitant]
  4. INCIVEK [Suspect]
     Dosage: 2250 MG (750 MG, 3 IN 1 D), ORAL
     Route: 048
     Dates: start: 20111114
  5. XANAX [Concomitant]

REACTIONS (2)
  - MYALGIA [None]
  - ARTHRALGIA [None]
